FAERS Safety Report 4392215-6 (Version None)
Quarter: 2004Q3

REPORT INFORMATION
  Report Type: 
  Country: None (occurrence: None)
  Receive Date: 20040708
  Receipt Date: 20040629
  Transmission Date: 20050211
  Serious: Yes (Other)
  Sender: FDA-Public Use
  Company Number: SE-BRISTOL-MYERS SQUIBB COMPANY-12628871

PATIENT
  Sex: Female

DRUGS (5)
  1. TAXOL [Suspect]
     Indication: OVARIAN CANCER
  2. BETAMETHASONE [Concomitant]
     Indication: PREMEDICATION
  3. CLEMASTINE [Concomitant]
     Indication: PREMEDICATION
  4. TROPISETRON [Concomitant]
     Indication: PREMEDICATION
  5. CIMETIDINE [Concomitant]
     Indication: PREMEDICATION

REACTIONS (3)
  - BACK PAIN [None]
  - MUSCLE CRAMP [None]
  - MUSCLE TWITCHING [None]
